FAERS Safety Report 4320794-3 (Version None)
Quarter: 2004Q1

REPORT INFORMATION
  Report Type: 
  Country: None (occurrence: None)
  Receive Date: 20040322
  Receipt Date: 20040119
  Transmission Date: 20041129
  Serious: Yes (Hospitalization, Other)
  Sender: FDA-Public Use
  Company Number: WAES 0401USA01344

PATIENT
  Age: 87 Year
  Sex: Female

DRUGS (4)
  1. SINGULAIR [Suspect]
     Indication: COUGH
     Route: 048
     Dates: start: 20030701, end: 20030101
  2. SINGULAIR [Suspect]
     Route: 048
     Dates: start: 20030901
  3. SINGULAIR [Suspect]
     Indication: KERATOCONJUNCTIVITIS SICCA
     Route: 048
     Dates: start: 20030701, end: 20030101
  4. SINGULAIR [Suspect]
     Route: 048
     Dates: start: 20030901

REACTIONS (26)
  - ADVERSE EVENT [None]
  - ANOREXIA [None]
  - ASTHENIA [None]
  - BURNING SENSATION [None]
  - CARDIAC DISORDER [None]
  - CEREBROVASCULAR ACCIDENT [None]
  - CONDITION AGGRAVATED [None]
  - DECREASED APPETITE [None]
  - DYSGEUSIA [None]
  - FEELING ABNORMAL [None]
  - HEADACHE [None]
  - HYPERSENSITIVITY [None]
  - INCONTINENCE [None]
  - INSOMNIA [None]
  - IRRITABILITY [None]
  - LOSS OF CONSCIOUSNESS [None]
  - NAIL DISORDER [None]
  - NIGHTMARE [None]
  - PALPITATIONS [None]
  - PRURITUS [None]
  - SKIN ODOUR ABNORMAL [None]
  - SWELLING FACE [None]
  - TINNITUS [None]
  - TRANSIENT ISCHAEMIC ATTACK [None]
  - URTICARIA [None]
  - WEIGHT DECREASED [None]
